FAERS Safety Report 11649334 (Version 1)
Quarter: 2015Q4

REPORT INFORMATION
  Report Type: Spontaneous
  Country: JP (occurrence: JP)
  Receive Date: 20151021
  Receipt Date: 20151021
  Transmission Date: 20160304
  Serious: Yes (Other)
  Sender: FDA-Public Use
  Company Number: JP-PFIZER INC-2015335921

PATIENT
  Age: 45 Year
  Sex: Female

DRUGS (14)
  1. TRIAMCINOLONE [Concomitant]
     Active Substance: TRIAMCINOLONE
     Indication: CORNEAL DEPOSITS
  2. METHYLPREDNISOLONE ACETATE. [Suspect]
     Active Substance: METHYLPREDNISOLONE ACETATE
     Dosage: 1 G, DAILY
     Route: 042
  3. BETAMETHASONE. [Concomitant]
     Active Substance: BETAMETHASONE
     Indication: HYPOPYON
  4. PREDNISOLONE. [Suspect]
     Active Substance: PREDNISOLONE
     Indication: HYPOPYON
     Dosage: 40 MG, DAILY
     Route: 048
  5. TRIAMCINOLONE [Concomitant]
     Active Substance: TRIAMCINOLONE
     Indication: HYPOPYON
  6. BETAMETHASONE. [Concomitant]
     Active Substance: BETAMETHASONE
     Indication: IRIS ADHESIONS
  7. PREDNISOLONE. [Suspect]
     Active Substance: PREDNISOLONE
     Indication: IRITIS
     Dosage: 30 MG, DAILY
     Route: 048
  8. PREDNISOLONE. [Suspect]
     Active Substance: PREDNISOLONE
     Indication: CORNEAL DEPOSITS
     Dosage: 10 MG, DAILY
     Route: 048
  9. PREDNISOLONE. [Suspect]
     Active Substance: PREDNISOLONE
     Indication: IRIS ADHESIONS
  10. BETAMETHASONE. [Concomitant]
     Active Substance: BETAMETHASONE
     Indication: IRITIS
     Dosage: UNK
     Route: 061
  11. BETAMETHASONE. [Concomitant]
     Active Substance: BETAMETHASONE
     Indication: CORNEAL DEPOSITS
  12. TRIAMCINOLONE [Concomitant]
     Active Substance: TRIAMCINOLONE
     Indication: IRITIS
     Dosage: UNK
     Route: 057
  13. CYCLOSPORINE. [Concomitant]
     Active Substance: CYCLOSPORINE
     Indication: SCLERITIS
     Dosage: 3 MG/KG, DAILY
     Route: 048
  14. TRIAMCINOLONE [Concomitant]
     Active Substance: TRIAMCINOLONE
     Indication: IRIS ADHESIONS

REACTIONS (4)
  - Intraocular pressure increased [Unknown]
  - Scleral oedema [Recovered/Resolved]
  - Condition aggravated [Recovered/Resolved]
  - Eye pain [Recovered/Resolved]
